FAERS Safety Report 20890889 (Version 1)
Quarter: 2022Q2

REPORT INFORMATION
  Report Type: Spontaneous
  Country: US (occurrence: US)
  Receive Date: 20220530
  Receipt Date: 20220530
  Transmission Date: 20220721
  Serious: No
  Sender: FDA-Public Use
  Company Number: US-TOLMAR, INC.-22US034454

PATIENT
  Age: 80 Year
  Sex: Male

DRUGS (2)
  1. ELIGARD [Suspect]
     Active Substance: LEUPROLIDE ACETATE
     Indication: Prostate cancer
     Dosage: 45 MILLIGRAM, Q 6 MONTH
     Dates: start: 20201104
  2. ASPIRIN\HYDROCODONE BITARTRATE [Concomitant]
     Active Substance: ASPIRIN\HYDROCODONE BITARTRATE
     Indication: Pain

REACTIONS (7)
  - Insomnia [Unknown]
  - Depression [Unknown]
  - Arthralgia [Unknown]
  - Nocturia [Unknown]
  - Night sweats [Unknown]
  - Myalgia [Unknown]
  - Fatigue [Unknown]

NARRATIVE: CASE EVENT DATE: 20200101
